FAERS Safety Report 9396276 (Version 1)
Quarter: 2013Q3

REPORT INFORMATION
  Report Type: Spontaneous
  Country: US (occurrence: US)
  Receive Date: 20130711
  Receipt Date: 20130711
  Transmission Date: 20140515
  Serious: No
  Sender: FDA-Public Use
  Company Number: US-PFIZER INC-2013203282

PATIENT
  Age: 77 Year
  Sex: Female
  Weight: 68.48 kg

DRUGS (3)
  1. XANAX XR [Suspect]
     Indication: ANXIETY
     Dosage: 2 MG, 1X/DAY
     Dates: end: 201306
  2. XANAX XR [Suspect]
     Dosage: 1 MG, 1X/DAY
     Dates: start: 201306, end: 201307
  3. ZOCOR [Concomitant]
     Indication: BLOOD CHOLESTEROL INCREASED
     Dosage: UNK

REACTIONS (2)
  - Panic attack [Unknown]
  - Euphoric mood [Unknown]
